FAERS Safety Report 5386000-6 (Version None)
Quarter: 2007Q3

REPORT INFORMATION
  Report Type: 
  Country: None (occurrence: None)
  Receive Date: 20070709
  Receipt Date: 20070620
  Transmission Date: 20080115
  Serious: Yes (Other)
  Sender: FDA-Public Use
  Company Number: 6034876

PATIENT
  Age: 90 Year
  Sex: Female

DRUGS (4)
  1. METFORMIN HCL [Suspect]
     Indication: DIABETES MELLITUS
     Dosage: ONE YEAR AGO
  2. INDAPAMIDE [Concomitant]
  3. TENORMIN [Concomitant]
  4. ASPIRIN [Concomitant]

REACTIONS (1)
  - WEIGHT DECREASED [None]
